FAERS Safety Report 23094009 (Version 2)
Quarter: 2023Q4

REPORT INFORMATION
  Report Type: Spontaneous
  Country: DE (occurrence: DE)
  Receive Date: 20231023
  Receipt Date: 20231103
  Transmission Date: 20240110
  Serious: Yes (Hospitalization, Other)
  Sender: FDA-Public Use
  Company Number: DE-SA-2018SA300255

PATIENT
  Age: 68 Year
  Sex: Male

DRUGS (104)
  1. LIDOCAINE [Suspect]
     Active Substance: LIDOCAINE
     Indication: Pain
     Dosage: AT NIGHT
  2. LIDOCAINE [Suspect]
     Active Substance: LIDOCAINE
     Dosage: AT NIGHT
  3. LIDOCAINE [Suspect]
     Active Substance: LIDOCAINE
     Dosage: DOSE DESCRIPTION : UNK UNK, UNK
     Route: 061
  4. LIDOCAINE [Suspect]
     Active Substance: LIDOCAINE
     Dosage: AT NIGHT
  5. LIDOCAINE [Suspect]
     Active Substance: LIDOCAINE
     Dosage: AT NIGHT
  6. LIDOCAINE [Suspect]
     Active Substance: LIDOCAINE
     Dosage: DOSE DESCRIPTION : UNK UNK, UNK
     Route: 061
  7. CAPSAICIN [Suspect]
     Active Substance: CAPSAICIN
     Indication: Post herpetic neuralgia
  8. CAPSAICIN [Suspect]
     Active Substance: CAPSAICIN
  9. CAPSAICIN [Suspect]
     Active Substance: CAPSAICIN
     Dosage: DOSE DESCRIPTION : 8%
     Route: 061
  10. CAPSAICIN [Suspect]
     Active Substance: CAPSAICIN
  11. CAPSAICIN [Suspect]
     Active Substance: CAPSAICIN
  12. CAPSAICIN [Suspect]
     Active Substance: CAPSAICIN
     Dosage: DOSE DESCRIPTION : 8%
     Route: 061
  13. AMBROXOL HYDROCHLORIDE [Suspect]
     Active Substance: AMBROXOL HYDROCHLORIDE
     Indication: Pain
     Dosage: DOSE DESCRIPTION : 20 % OINTMENT
     Route: 061
  14. AMBROXOL HYDROCHLORIDE [Suspect]
     Active Substance: AMBROXOL HYDROCHLORIDE
     Dosage: DOSE DESCRIPTION : 20 % OINTMENT
     Route: 061
  15. AMBROXOL [Suspect]
     Active Substance: AMBROXOL
     Indication: Pain
  16. AMBROXOL [Suspect]
     Active Substance: AMBROXOL
     Indication: Product used for unknown indication
  17. AMITRIPTYLINE HYDROCHLORIDE [Suspect]
     Active Substance: AMITRIPTYLINE HYDROCHLORIDE
     Indication: Trigeminal neuralgia
     Dosage: DOSE DESCRIPTION : 20 MG, UNK
     Route: 065
  18. AMITRIPTYLINE HYDROCHLORIDE [Suspect]
     Active Substance: AMITRIPTYLINE HYDROCHLORIDE
     Indication: Pain
     Dosage: DOSE DESCRIPTION : 25 UNK
     Route: 065
  19. AMITRIPTYLINE HYDROCHLORIDE [Suspect]
     Active Substance: AMITRIPTYLINE HYDROCHLORIDE
     Dosage: DOSE DESCRIPTION : AMITRIPTYLINE 10 DROPS (WEEK 8)
     Route: 065
  20. AMITRIPTYLINE HYDROCHLORIDE [Suspect]
     Active Substance: AMITRIPTYLINE HYDROCHLORIDE
     Dosage: DOSE DESCRIPTION : 20 MG, UNK
     Route: 065
  21. AMITRIPTYLINE HYDROCHLORIDE [Suspect]
     Active Substance: AMITRIPTYLINE HYDROCHLORIDE
     Dosage: DOSE DESCRIPTION : 25 UNK
     Route: 065
  22. AMITRIPTYLINE HYDROCHLORIDE [Suspect]
     Active Substance: AMITRIPTYLINE HYDROCHLORIDE
     Dosage: DOSE DESCRIPTION : AMITRIPTYLINE 10 DROPS (WEEK 8)
     Route: 065
  23. OXCARBAZEPINE [Suspect]
     Active Substance: OXCARBAZEPINE
     Indication: Post herpetic neuralgia
     Dosage: 4X150 MG; LATER REDUCED TO 2X150 MG
     Route: 065
  24. OXCARBAZEPINE [Suspect]
     Active Substance: OXCARBAZEPINE
     Dosage: 4X150 MG; LATER REDUCED TO 2X150 MG
     Route: 065
  25. OXCARBAZEPINE [Suspect]
     Active Substance: OXCARBAZEPINE
     Dosage: DOSE DESCRIPTION : 600 MG, UNK,WEEK 8
     Route: 065
  26. OXCARBAZEPINE [Suspect]
     Active Substance: OXCARBAZEPINE
     Dosage: DOSE DESCRIPTION : 300 MG, UNK 150 MG, 2X/DAY
     Route: 065
  27. OXCARBAZEPINE [Suspect]
     Active Substance: OXCARBAZEPINE
     Dosage: 4X150 MG; LATER REDUCED TO 2X150 MG
     Route: 065
  28. OXCARBAZEPINE [Suspect]
     Active Substance: OXCARBAZEPINE
     Dosage: 4X150 MG; LATER REDUCED TO 2X150 MG
     Route: 065
  29. OXCARBAZEPINE [Suspect]
     Active Substance: OXCARBAZEPINE
     Dosage: DOSE DESCRIPTION : 600 MG, UNK,WEEK 8
     Route: 065
  30. OXCARBAZEPINE [Suspect]
     Active Substance: OXCARBAZEPINE
     Dosage: DOSE DESCRIPTION : 300 MG, UNK 150 MG, 2X/DAY
     Route: 065
  31. PREGABALIN [Suspect]
     Active Substance: PREGABALIN
     Indication: Post herpetic neuralgia
     Route: 065
  32. PREGABALIN [Suspect]
     Active Substance: PREGABALIN
     Route: 065
  33. PREGABALIN [Suspect]
     Active Substance: PREGABALIN
     Route: 065
  34. PREGABALIN [Suspect]
     Active Substance: PREGABALIN
     Route: 065
  35. GABAPENTIN [Suspect]
     Active Substance: GABAPENTIN
     Indication: Pain
     Dosage: INCREASED DOSE TO 2400 MG/DAY
     Route: 065
  36. GABAPENTIN [Suspect]
     Active Substance: GABAPENTIN
     Indication: Post herpetic neuralgia
     Route: 065
  37. GABAPENTIN [Suspect]
     Active Substance: GABAPENTIN
     Dosage: 600-300-300 MG; THE MAN TOOK INCREASED DOSE UP TO 2400 MG/DAY
     Route: 065
  38. GABAPENTIN [Suspect]
     Active Substance: GABAPENTIN
     Route: 065
  39. GABAPENTIN [Suspect]
     Active Substance: GABAPENTIN
     Dosage: 3X600MG
     Route: 065
  40. GABAPENTIN [Suspect]
     Active Substance: GABAPENTIN
     Dosage: 300-300-300
     Route: 065
  41. GABAPENTIN [Suspect]
     Active Substance: GABAPENTIN
     Dosage: INCREASED DOSE TO 2400 MG/DAY
     Route: 065
  42. GABAPENTIN [Suspect]
     Active Substance: GABAPENTIN
     Route: 065
  43. GABAPENTIN [Suspect]
     Active Substance: GABAPENTIN
     Dosage: 600-300-300 MG; THE MAN TOOK INCREASED DOSE UP TO 2400 MG/DAY
     Route: 065
  44. GABAPENTIN [Suspect]
     Active Substance: GABAPENTIN
     Route: 065
  45. GABAPENTIN [Suspect]
     Active Substance: GABAPENTIN
     Dosage: 3X600MG
     Route: 065
  46. GABAPENTIN [Suspect]
     Active Substance: GABAPENTIN
     Dosage: 300-300-300
     Route: 065
  47. GABAPENTIN [Suspect]
     Active Substance: GABAPENTIN
     Dosage: DOSE DESCRIPTION : 1800 MG/D
     Route: 065
  48. GABAPENTIN [Suspect]
     Active Substance: GABAPENTIN
     Dosage: DOSE DESCRIPTION : 600-300-300 MG (WEEK 17)
     Route: 065
  49. GABAPENTIN [Suspect]
     Active Substance: GABAPENTIN
     Dosage: DOSE DESCRIPTION : GABAPENTIN 300-300-300
     Route: 065
  50. GABAPENTIN [Suspect]
     Active Substance: GABAPENTIN
     Dosage: INCREASED DOSE TO 2400 MG/DAY
     Route: 065
  51. GABAPENTIN [Suspect]
     Active Substance: GABAPENTIN
     Dosage: INCREASED DOSE TO 2400 MG/DAY
     Route: 065
  52. GABAPENTIN [Suspect]
     Active Substance: GABAPENTIN
     Route: 065
  53. GABAPENTIN [Suspect]
     Active Substance: GABAPENTIN
     Dosage: 600-300-300 MG; THE MAN TOOK INCREASED DOSE UP TO 2400 MG/DAY
     Route: 065
  54. GABAPENTIN [Suspect]
     Active Substance: GABAPENTIN
     Route: 065
  55. GABAPENTIN [Suspect]
     Active Substance: GABAPENTIN
     Dosage: 3X600MG
     Route: 065
  56. GABAPENTIN [Suspect]
     Active Substance: GABAPENTIN
     Dosage: 300-300-300
     Route: 065
  57. GABAPENTIN [Suspect]
     Active Substance: GABAPENTIN
     Dosage: INCREASED DOSE TO 2400 MG/DAY
     Route: 065
  58. GABAPENTIN [Suspect]
     Active Substance: GABAPENTIN
     Route: 065
  59. GABAPENTIN [Suspect]
     Active Substance: GABAPENTIN
     Dosage: 600-300-300 MG; THE MAN TOOK INCREASED DOSE UP TO 2400 MG/DAY
     Route: 065
  60. GABAPENTIN [Suspect]
     Active Substance: GABAPENTIN
     Route: 065
  61. GABAPENTIN [Suspect]
     Active Substance: GABAPENTIN
     Dosage: 3X600MG
     Route: 065
  62. GABAPENTIN [Suspect]
     Active Substance: GABAPENTIN
     Dosage: 300-300-300
     Route: 065
  63. GABAPENTIN [Suspect]
     Active Substance: GABAPENTIN
     Dosage: DOSE DESCRIPTION : 1800 MG/D
     Route: 065
  64. GABAPENTIN [Suspect]
     Active Substance: GABAPENTIN
     Dosage: DOSE DESCRIPTION : 600-300-300 MG (WEEK 17)
     Route: 065
  65. GABAPENTIN [Suspect]
     Active Substance: GABAPENTIN
     Dosage: DOSE DESCRIPTION : GABAPENTIN 300-300-300
     Route: 065
  66. GABAPENTIN [Suspect]
     Active Substance: GABAPENTIN
     Dosage: INCREASED DOSE TO 2400 MG/DAY
     Route: 065
  67. TAPENTADOL HYDROCHLORIDE [Suspect]
     Active Substance: TAPENTADOL HYDROCHLORIDE
     Indication: Trigeminal neuralgia
     Dosage: DOSE DESCRIPTION : 500 MG, 1X/DAY (150 - 150 - 200 MG)
     Route: 065
  68. TAPENTADOL HYDROCHLORIDE [Suspect]
     Active Substance: TAPENTADOL HYDROCHLORIDE
     Dosage: DOSE DESCRIPTION : 100-100-200 MG (AFTER 8 MONTHS)
     Route: 065
  69. TAPENTADOL HYDROCHLORIDE [Suspect]
     Active Substance: TAPENTADOL HYDROCHLORIDE
     Dosage: DOSE DESCRIPTION : 500 MG, 1X/DAY (150 - 150 - 200 MG)
     Route: 065
  70. TAPENTADOL HYDROCHLORIDE [Suspect]
     Active Substance: TAPENTADOL HYDROCHLORIDE
     Dosage: DOSE DESCRIPTION : 100-100-200 MG (AFTER 8 MONTHS)
     Route: 065
  71. DEXAMETHASONE [Suspect]
     Active Substance: DEXAMETHASONE
     Indication: Pain
     Route: 065
  72. DEXAMETHASONE [Suspect]
     Active Substance: DEXAMETHASONE
     Route: 065
  73. DEXAMETHASONE [Suspect]
     Active Substance: DEXAMETHASONE
     Route: 065
  74. DEXAMETHASONE [Suspect]
     Active Substance: DEXAMETHASONE
     Route: 065
  75. DEXAMETHASONE [Suspect]
     Active Substance: DEXAMETHASONE
     Route: 065
  76. DEXAMETHASONE [Suspect]
     Active Substance: DEXAMETHASONE
     Route: 065
  77. HYDROMORPHONE [Suspect]
     Active Substance: HYDROMORPHONE
     Indication: Pain
     Dosage: 4-0-4 MG
     Route: 065
  78. HYDROMORPHONE [Suspect]
     Active Substance: HYDROMORPHONE
     Dosage: UNKNOWN
     Route: 065
  79. HYDROMORPHONE [Suspect]
     Active Substance: HYDROMORPHONE
     Dosage: 4-0-4 MG
     Route: 065
  80. HYDROMORPHONE [Suspect]
     Active Substance: HYDROMORPHONE
     Dosage: UNKNOWN
     Route: 065
  81. HYDROMORPHONE [Suspect]
     Active Substance: HYDROMORPHONE
     Dosage: DOSE DESCRIPTION : 8 MG, UNK 4 MG, 2X/DAY (4 - 0 - 4 MG)
     Route: 065
  82. HYDROMORPHONE [Suspect]
     Active Substance: HYDROMORPHONE
     Dosage: 4-0-4 MG
     Route: 065
  83. HYDROMORPHONE [Suspect]
     Active Substance: HYDROMORPHONE
     Dosage: UNKNOWN
     Route: 065
  84. HYDROMORPHONE [Suspect]
     Active Substance: HYDROMORPHONE
     Dosage: 4-0-4 MG
     Route: 065
  85. HYDROMORPHONE [Suspect]
     Active Substance: HYDROMORPHONE
     Dosage: UNKNOWN
     Route: 065
  86. HYDROMORPHONE [Suspect]
     Active Substance: HYDROMORPHONE
     Dosage: DOSE DESCRIPTION : 8 MG, UNK 4 MG, 2X/DAY (4 - 0 - 4 MG)
     Route: 065
  87. ACYCLOVIR [Suspect]
     Active Substance: ACYCLOVIR
     Indication: Herpes zoster
     Route: 065
  88. ACYCLOVIR [Suspect]
     Active Substance: ACYCLOVIR
     Route: 065
  89. ACYCLOVIR [Suspect]
     Active Substance: ACYCLOVIR
     Route: 065
  90. ACYCLOVIR [Suspect]
     Active Substance: ACYCLOVIR
     Route: 065
  91. TAPENTADOL [Suspect]
     Active Substance: TAPENTADOL
     Indication: Pain
     Dosage: 100-100-200 MG
     Route: 065
  92. TAPENTADOL [Suspect]
     Active Substance: TAPENTADOL
     Indication: Post herpetic neuralgia
     Dosage: 150-150-200 MG; LATER REDUCED TO 100-100-200 MG
     Route: 065
  93. TAPENTADOL [Suspect]
     Active Substance: TAPENTADOL
     Dosage: 100-100-200 MG
     Route: 065
  94. TAPENTADOL [Suspect]
     Active Substance: TAPENTADOL
     Dosage: 150-150-200 MG; LATER REDUCED TO 100-100-200 MG
     Route: 065
  95. LIDOCAINE PATCH [Suspect]
     Active Substance: LIDOCAINE
     Indication: Post herpetic neuralgia
  96. LIDOCAINE PATCH [Suspect]
     Active Substance: LIDOCAINE
  97. AMITRIPTYLINE [Suspect]
     Active Substance: AMITRIPTYLINE
     Indication: Pain
     Dosage: 10 DROPS
     Route: 065
  98. AMITRIPTYLINE [Suspect]
     Active Substance: AMITRIPTYLINE
     Dosage: 10 DROPS
     Route: 065
  99. DEXKETOPROFEN [Concomitant]
     Active Substance: DEXKETOPROFEN
     Indication: Post herpetic neuralgia
     Dosage: FOR 60 MINUTES
     Route: 050
  100. DEXKETOPROFEN [Concomitant]
     Active Substance: DEXKETOPROFEN
     Dosage: FOR 60 MINUTES
     Route: 050
  101. DEXKETOPROFEN [Concomitant]
     Active Substance: DEXKETOPROFEN
     Dosage: DOSE DESCRIPTION : FOR 60 MINUTES
     Route: 065
  102. DEXKETOPROFEN [Concomitant]
     Active Substance: DEXKETOPROFEN
     Dosage: FOR 60 MINUTES
     Route: 050
  103. DEXKETOPROFEN [Concomitant]
     Active Substance: DEXKETOPROFEN
     Dosage: FOR 60 MINUTES
     Route: 050
  104. DEXKETOPROFEN [Concomitant]
     Active Substance: DEXKETOPROFEN
     Dosage: DOSE DESCRIPTION : FOR 60 MINUTES
     Route: 065

REACTIONS (25)
  - Glaucoma [Unknown]
  - Atrial fibrillation [Unknown]
  - Quality of life decreased [Unknown]
  - Fatigue [Unknown]
  - Post herpetic neuralgia [Unknown]
  - Fall [Unknown]
  - Constipation [Unknown]
  - Drug eruption [Unknown]
  - Application site erythema [Unknown]
  - Application site pain [Unknown]
  - Off label use [Unknown]
  - Depression [Unknown]
  - Confusional state [Unknown]
  - Intentional product use issue [Unknown]
  - Benign prostatic hyperplasia [Unknown]
  - Liver function test increased [Unknown]
  - Sleep apnoea syndrome [Recovered/Resolved]
  - Osteoarthritis [Unknown]
  - Nasopharyngitis [Unknown]
  - Blood creatinine increased [Unknown]
  - Hyperaesthesia [Unknown]
  - Sleep deficit [Recovered/Resolved]
  - Insomnia [Unknown]
  - Drug ineffective [Unknown]
  - Therapeutic product effect incomplete [Unknown]
